FAERS Safety Report 9832764 (Version 3)
Quarter: 2014Q1

REPORT INFORMATION
  Report Type: Spontaneous
  Country: US (occurrence: US)
  Receive Date: 20140121
  Receipt Date: 20140310
  Transmission Date: 20141002
  Serious: Yes (Hospitalization)
  Sender: FDA-Public Use
  Company Number: US-GLAXOSMITHKLINE-A1056760A

PATIENT
  Sex: Female

DRUGS (3)
  1. ADVAIR [Suspect]
     Indication: ASTHMA
     Dosage: 1PUFF TWICE PER DAY
     Route: 055
  2. HEART MEDICATION [Concomitant]
  3. CHOLESTEROL REDUCING AGENT NAME NOT KNOWN [Concomitant]

REACTIONS (1)
  - Myocardial infarction [Not Recovered/Not Resolved]
